FAERS Safety Report 6288797-X (Version None)
Quarter: 2009Q3

REPORT INFORMATION
  Report Type: 
  Country: None (occurrence: None)
  Receive Date: 20090729
  Receipt Date: 20090721
  Transmission Date: 20100115
  Serious: Yes (Other)
  Sender: FDA-Public Use
  Company Number: DE-PFIZER INC-2009243322

PATIENT
  Age: 61 Year

DRUGS (3)
  1. INSPRA [Suspect]
     Indication: HYPOKALAEMIA
     Dosage: 50 MG, DAILY
     Route: 048
     Dates: start: 20090623, end: 20090717
  2. ISMN ^GENERICON^ [Concomitant]
     Dosage: UNK
  3. LANTUS [Concomitant]
     Indication: DIABETES MELLITUS
     Dosage: UNK

REACTIONS (2)
  - RASH PUSTULAR [None]
  - SWELLING FACE [None]
